FAERS Safety Report 6396717-2 (Version None)
Quarter: 2009Q4

REPORT INFORMATION
  Report Type: 
  Country: None (occurrence: None)
  Receive Date: 20091008
  Receipt Date: 20091008
  Transmission Date: 20100525
  Serious: Yes (Hospitalization)
  Sender: FDA-Public Use
  Company Number: None

PATIENT
  Age: 66 Year
  Sex: Female

DRUGS (1)
  1. SORAFENIB 200MG TABS [Suspect]
     Indication: NEOPLASM
     Dosage: 400MG TWICE DAILY PO
     Route: 048
     Dates: start: 20090805, end: 20090828

REACTIONS (5)
  - ACTIVITIES OF DAILY LIVING IMPAIRED [None]
  - ASTHENIA [None]
  - HYPOKALAEMIA [None]
  - LEUKOPENIA [None]
  - PYREXIA [None]
